FAERS Safety Report 4588812-5 (Version None)
Quarter: 2005Q1

REPORT INFORMATION
  Report Type: 
  Country: None (occurrence: None)
  Receive Date: 20050216
  Receipt Date: 20050203
  Transmission Date: 20050727
  Serious: Yes (Hospitalization, Other)
  Sender: FDA-Public Use
  Company Number: 2004105547

PATIENT
  Age: 26 Year
  Sex: Male

DRUGS (3)
  1. GEODON [Suspect]
     Indication: SCHIZOAFFECTIVE DISORDER
     Dosage: SEE IMAGE
     Route: 030
     Dates: start: 20041126
  2. VALPROATE SODIUM [Concomitant]
  3. LORAZEPAM [Concomitant]

REACTIONS (6)
  - CATATONIA [None]
  - DEHYDRATION [None]
  - NEUROLEPTIC MALIGNANT SYNDROME [None]
  - RENAL FAILURE ACUTE [None]
  - SCHIZOPHRENIA, CATATONIC TYPE [None]
  - WHITE BLOOD CELL COUNT INCREASED [None]
